FAERS Safety Report 5672281-8 (Version None)
Quarter: 2008Q1

REPORT INFORMATION
  Report Type: 
  Country: None (occurrence: None)
  Receive Date: 20080319
  Receipt Date: 20080305
  Transmission Date: 20080703
  Serious: Yes (Life-Threatening, Other)
  Sender: FDA-Public Use
  Company Number: ZA-AMGEN-UK268794

PATIENT
  Sex: Female
  Weight: 78 kg

DRUGS (2)
  1. NEUPOGEN [Suspect]
     Indication: NEUTROPENIA
     Route: 058
     Dates: start: 20080229, end: 20080302
  2. RADIATION THERAPY [Suspect]
     Dates: start: 20050701, end: 20050801

REACTIONS (1)
  - NEUTROPHIL COUNT DECREASED [None]
